FAERS Safety Report 18295409 (Version 1)
Quarter: 2020Q3

REPORT INFORMATION
  Report Type: Spontaneous
  Country: US (occurrence: US)
  Receive Date: 20200922
  Receipt Date: 20200922
  Transmission Date: 20201103
  Serious: Yes (Other)
  Sender: FDA-Public Use
  Company Number: None

PATIENT
  Age: 78 Year
  Sex: Female
  Weight: 72 kg

DRUGS (6)
  1. CARBODOPA/LEVODOPA [Concomitant]
  2. LORSARTAN [Concomitant]
     Active Substance: LOSARTAN
  3. ZOLEDRONIC ACID [Suspect]
     Active Substance: ZOLEDRONIC ACID
     Indication: BONE DISORDER
     Dosage: ?          QUANTITY:1 IV;OTHER FREQUENCY:ONCE PER YEAR;?
     Route: 042
     Dates: start: 20200826, end: 20200826
  4. VITAMIN D [Concomitant]
     Active Substance: VITAMIN D NOS
  5. AZO [Concomitant]
     Active Substance: PHENAZOPYRIDINE HYDROCHLORIDE
  6. CITIRIZINE [Concomitant]

REACTIONS (4)
  - Eye inflammation [None]
  - Vision blurred [None]
  - Back pain [None]
  - Eye pain [None]

NARRATIVE: CASE EVENT DATE: 20200828
